FAERS Safety Report 5799477-9 (Version None)
Quarter: 2008Q3

REPORT INFORMATION
  Report Type: 
  Country: None (occurrence: None)
  Receive Date: 20080701
  Receipt Date: 20080619
  Transmission Date: 20090109
  Serious: Yes (Other)
  Sender: FDA-Public Use
  Company Number: 2008BI015835

PATIENT
  Age: 28 Year
  Sex: Female

DRUGS (2)
  1. TYSABRI [Suspect]
     Indication: MULTIPLE SCLEROSIS
     Dosage: IV
     Route: 042
     Dates: start: 20080118
  2. AVONEX [Suspect]

REACTIONS (13)
  - CONVULSION [None]
  - DISTURBANCE IN ATTENTION [None]
  - DYSPHONIA [None]
  - FATIGUE [None]
  - HYPOAESTHESIA [None]
  - INFUSION SITE PAIN [None]
  - INTERVERTEBRAL DISC PROTRUSION [None]
  - MEMORY IMPAIRMENT [None]
  - MULTIPLE SCLEROSIS [None]
  - PAIN [None]
  - SLUGGISHNESS [None]
  - SOMNAMBULISM [None]
  - STRESS [None]
